FAERS Safety Report 15268745 (Version 1)
Quarter: 2018Q3

REPORT INFORMATION
  Report Type: Report from Study
  Country: FR (occurrence: FR)
  Receive Date: 20180813
  Receipt Date: 20180813
  Transmission Date: 20181010
  Serious: Yes (Hospitalization, Other)
  Sender: FDA-Public Use
  Company Number: FR-TEVA-2018-FR-940577

PATIENT
  Sex: Female

DRUGS (9)
  1. CYCLOPHOSPHAMIDE. [Suspect]
     Active Substance: CYCLOPHOSPHAMIDE
     Indication: ACUTE LYMPHOCYTIC LEUKAEMIA
     Dosage: 720 MILLIGRAM DAILY; 720 MG, 1X/DAY:QD
     Route: 042
     Dates: start: 20180128, end: 20180128
  2. METHYLPREDNISOLONE. [Suspect]
     Active Substance: METHYLPREDNISOLONE
     Indication: ACUTE LYMPHOCYTIC LEUKAEMIA
     Dosage: 12.4 MILLIGRAM DAILY; 12.4 MG, 1X/DAY:QD
     Route: 037
     Dates: start: 20180130, end: 20180130
  3. PEGASPARGASE [Suspect]
     Active Substance: PEGASPARGASE
     Indication: ACUTE LYMPHOCYTIC LEUKAEMIA
     Dosage: 1650 IU (INTERNATIONAL UNIT) DAILY; 1650 IU, 1X/DAY:QD
     Route: 042
     Dates: start: 20180211, end: 20180211
  4. CYTARABINE. [Suspect]
     Active Substance: CYTARABINE
     Dosage: 25 MILLIGRAM DAILY; 25 MG, 1X/DAY:QD
     Route: 037
     Dates: start: 20180130, end: 20180130
  5. ZOPHREN                            /00955301/ [Concomitant]
     Active Substance: ONDANSETRON
     Indication: ACUTE LYMPHOCYTIC LEUKAEMIA
     Route: 065
  6. METHOTREXATE. [Suspect]
     Active Substance: METHOTREXATE
     Indication: ACUTE LYMPHOCYTIC LEUKAEMIA
     Dosage: 10 MILLIGRAM DAILY; 10 MG, 1X/DAY:QD
     Route: 037
     Dates: start: 20180130, end: 20180130
  7. VINCRISTINE [Suspect]
     Active Substance: VINCRISTINE
     Indication: ACUTE LYMPHOCYTIC LEUKAEMIA
     Dosage: 1 MILLIGRAM DAILY; 1 MG, 1X/DAY:QD
     Route: 042
     Dates: start: 20180211, end: 20180211
  8. 6?MERCAPTOPURINE MONOHYDRATE [Suspect]
     Active Substance: MERCAPTOPURINE
     Indication: ACUTE LYMPHOCYTIC LEUKAEMIA
     Dosage: 42 MILLIGRAM DAILY; 42 MG, 1X/DAY:QD
     Route: 048
     Dates: start: 20180128, end: 20180210
  9. CYTARABINE. [Suspect]
     Active Substance: CYTARABINE
     Indication: ACUTE LYMPHOCYTIC LEUKAEMIA
     Dosage: 52.5 MILLIGRAM DAILY; 52.5 MG, 1X/DAY:QD
     Route: 042
     Dates: start: 20180130, end: 20180209

REACTIONS (1)
  - Febrile bone marrow aplasia [Recovering/Resolving]

NARRATIVE: CASE EVENT DATE: 20180214
